FAERS Safety Report 12432257 (Version 1)
Quarter: 2016Q2

REPORT INFORMATION
  Report Type: Spontaneous
  Country: US (occurrence: None)
  Receive Date: 20160602
  Receipt Date: 20160602
  Transmission Date: 20160815
  Serious: No
  Sender: FDA-Public Use
  Company Number: None

PATIENT
  Age: 67 Year
  Sex: Female

DRUGS (1)
  1. LOSARTAN POTASSIUM. [Suspect]
     Active Substance: LOSARTAN POTASSIUM

REACTIONS (10)
  - Dry throat [None]
  - Dry mouth [None]
  - Dyspnoea [None]
  - Abdominal pain [None]
  - Headache [None]
  - Mucous membrane disorder [None]
  - Depressed mood [None]
  - Insomnia [None]
  - Fatigue [None]
  - Tongue dry [None]

NARRATIVE: CASE EVENT DATE: 20160527
